FAERS Safety Report 4381414-5 (Version None)
Quarter: 2004Q2

REPORT INFORMATION
  Report Type: 
  Country: None (occurrence: None)
  Receive Date: 20040616
  Receipt Date: 20040527
  Transmission Date: 20050107
  Serious: Yes (Other)
  Sender: FDA-Public Use
  Company Number: USA040361886

PATIENT
  Sex: Female

DRUGS (2)
  1. EVISTA [Suspect]
  2. CELEBREX [Concomitant]

REACTIONS (5)
  - ARTHRITIS [None]
  - ARTHROPATHY [None]
  - CONDITION AGGRAVATED [None]
  - EMPHYSEMA [None]
  - UNEVALUABLE EVENT [None]
